FAERS Safety Report 10415153 (Version 3)
Quarter: 2014Q3

REPORT INFORMATION
  Report Type: Spontaneous
  Country: KR (occurrence: KR)
  Receive Date: 20140828
  Receipt Date: 20140922
  Transmission Date: 20150326
  Serious: Yes (Death)
  Sender: FDA-Public Use
  Company Number: KR-ASTELLAS-2014JP018857

PATIENT
  Sex: Male

DRUGS (1)
  1. XTANDI [Suspect]
     Active Substance: ENZALUTAMIDE
     Indication: PROSTATE CANCER
     Route: 048
     Dates: start: 20140816, end: 20140817

REACTIONS (1)
  - Death [Fatal]

NARRATIVE: CASE EVENT DATE: 20140818
